FAERS Safety Report 23893937 (Version 4)
Quarter: 2024Q3

REPORT INFORMATION
  Report Type: Spontaneous
  Country: CN (occurrence: None)
  Receive Date: 20240524
  Receipt Date: 20240711
  Transmission Date: 20241016
  Serious: Yes (Hospitalization, Other)
  Sender: ASTRAZENECA
  Company Number: 2024A120138

PATIENT
  Sex: Female
  Weight: 49 kg

DRUGS (3)
  1. TAGRISSO [Suspect]
     Active Substance: OSIMERTINIB
     Indication: Lung adenocarcinoma
     Route: 048
  2. LOSEC [Suspect]
     Active Substance: OMEPRAZOLE
     Indication: Gastrooesophageal reflux disease
     Route: 048
  3. LOSEC [Suspect]
     Active Substance: OMEPRAZOLE
     Indication: Appetite disorder
     Route: 048

REACTIONS (14)
  - Atrial fibrillation [Recovering/Resolving]
  - Ascites [Unknown]
  - Cardiac disorder [Unknown]
  - Tooth disorder [Unknown]
  - Diarrhoea [Recovering/Resolving]
  - Eructation [Recovering/Resolving]
  - Cough [Unknown]
  - Decreased appetite [Recovered/Resolved]
  - Gastrooesophageal reflux disease [Recovered/Resolved]
  - Asthenia [Unknown]
  - Dermatitis [Recovered/Resolved]
  - Rash [Recovered/Resolved]
  - Dry skin [Unknown]
  - Pruritus [Unknown]
